FAERS Safety Report 4394050-1 (Version None)
Quarter: 2004Q3

REPORT INFORMATION
  Report Type: 
  Country: None (occurrence: None)
  Receive Date: 20040709
  Receipt Date: 20030703
  Transmission Date: 20050211
  Serious: Yes (Hospitalization, Disabling, Other)
  Sender: FDA-Public Use
  Company Number: US-MERCK-0307USA00400

PATIENT
  Age: 62 Year
  Sex: Female

DRUGS (17)
  1. LIPITOR [Concomitant]
     Indication: BLOOD CHOLESTEROL INCREASED
     Route: 065
     Dates: start: 19970101
  2. CELEBREX [Concomitant]
     Route: 065
     Dates: start: 19990101, end: 20010601
  3. VOLTAREN [Concomitant]
     Route: 065
  4. DURAGESIC [Concomitant]
     Indication: ARTHRALGIA
     Route: 061
  5. DYAZIDE [Concomitant]
     Route: 065
  6. METOPROLOL [Concomitant]
     Route: 065
     Dates: start: 19980101
  7. LOPRESSOR [Concomitant]
     Indication: HYPERTENSION
     Route: 065
     Dates: start: 19970101
  8. PRILOSEC [Concomitant]
     Route: 065
  9. DENAVIR [Concomitant]
     Route: 065
  10. VIOXX [Suspect]
     Indication: ARTHROPATHY
     Route: 048
     Dates: start: 19990601, end: 20010101
  11. VIOXX [Suspect]
     Route: 048
     Dates: start: 20010121
  12. VIOXX [Suspect]
     Route: 048
     Dates: start: 20010101, end: 20010701
  13. VIOXX [Suspect]
     Indication: PAIN
     Route: 048
     Dates: start: 19990601, end: 20010101
  14. VIOXX [Suspect]
     Route: 048
     Dates: start: 20010121
  15. VIOXX [Suspect]
     Route: 048
     Dates: start: 20010101, end: 20010701
  16. ZOLOFT [Concomitant]
     Route: 065
     Dates: start: 19980101
  17. TRIAMTERENE [Concomitant]
     Route: 065

REACTIONS (23)
  - ANAEMIA [None]
  - ANAEMIA MACROCYTIC [None]
  - ANAEMIA OF CHRONIC DISEASE [None]
  - ANGIODYSPLASIA [None]
  - ANXIETY [None]
  - BRONCHITIS [None]
  - CARDIAC MURMUR [None]
  - DEPRESSION [None]
  - DIVERTICULAR PERFORATION [None]
  - DIZZINESS [None]
  - GASTRITIS [None]
  - GASTROINTESTINAL HAEMORRHAGE [None]
  - GASTROOESOPHAGEAL REFLUX DISEASE [None]
  - HYPERLIPIDAEMIA [None]
  - HYPERTENSION [None]
  - LOCALISED OSTEOARTHRITIS [None]
  - MUSCLE CRAMP [None]
  - NAUSEA [None]
  - PALPITATIONS [None]
  - POLYP COLORECTAL [None]
  - RECTAL HAEMORRHAGE [None]
  - RESPIRATORY RATE INCREASED [None]
  - SMALL INTESTINAL HAEMORRHAGE [None]
